FAERS Safety Report 10598059 (Version 1)
Quarter: 2014Q4

REPORT INFORMATION
  Report Type: Spontaneous
  Country: AU (occurrence: AU)
  Receive Date: 20141121
  Receipt Date: 20141121
  Transmission Date: 20150529
  Serious: Yes (Other)
  Sender: FDA-Public Use
  Company Number: AU-PFIZER INC-2014318362

PATIENT
  Age: 4 Decade
  Sex: Female

DRUGS (1)
  1. EFFEXOR XR [Suspect]
     Active Substance: VENLAFAXINE HYDROCHLORIDE
     Dosage: UNK

REACTIONS (5)
  - Throat tightness [Unknown]
  - Pruritus [Unknown]
  - Rash generalised [Unknown]
  - Pain [Unknown]
  - Rash erythematous [Unknown]
